FAERS Safety Report 7225346-3 (Version None)
Quarter: 2011Q1

REPORT INFORMATION
  Report Type: 
  Country: None (occurrence: None)
  Receive Date: 20110113
  Receipt Date: 20101229
  Transmission Date: 20110831
  Serious: No
  Sender: FDA-Public Use
  Company Number: US-B.I. PHARMACEUTICALS,INC./RIDGEFIELD-2010-BP-13648BP

PATIENT
  Sex: Male

DRUGS (9)
  1. ALLOPURINOL [Concomitant]
     Indication: GOUT
  2. ASPIRIN [Concomitant]
  3. OCUVIT E-PRESER [Concomitant]
  4. LISINOPRIL [Concomitant]
     Indication: HYPERTENSION
  5. LANOXIN [Concomitant]
  6. SIMVASTATIN [Concomitant]
     Indication: BLOOD CHOLESTEROL INCREASED
  7. FUROSEMIDE [Concomitant]
     Indication: HYPERTENSION
  8. PRADAXA [Suspect]
     Indication: ATRIAL FIBRILLATION
     Dosage: 300 MG
     Route: 048
     Dates: start: 20101120
  9. TOPROL-XL [Concomitant]
     Indication: HYPERTENSION

REACTIONS (2)
  - OESOPHAGEAL PAIN [None]
  - INSOMNIA [None]
